FAERS Safety Report 7912504-5 (Version None)
Quarter: 2011Q4

REPORT INFORMATION
  Report Type: 
  Country: None (occurrence: None)
  Receive Date: 20111114
  Receipt Date: 20111110
  Transmission Date: 20120403
  Serious: Yes (Life-Threatening, Hospitalization)
  Sender: FDA-Public Use
  Company Number: US-UCBSA-044545

PATIENT
  Age: 73 Year
  Sex: Female
  Weight: 61.5 kg

DRUGS (9)
  1. CERTOLIZUMAB PEGOL [Suspect]
     Indication: RHEUMATOID ARTHRITIS
     Dosage: 200 OR 400 MG, NO. OF DOSES RECEIVED : 9
     Route: 058
     Dates: start: 20110629, end: 20111030
  2. MULTIPLE VITAMIN [Concomitant]
     Indication: SUPPLEMENTATION THERAPY
     Dosage: 1 TABLET ONCE A DAY
     Dates: start: 19910101
  3. ACETAMINOPHEN AND HYDROCODONE BITARTRATE [Concomitant]
     Indication: PAIN
     Dosage: 500/5 MG
     Dates: start: 20090401
  4. IRON [Concomitant]
     Indication: ANAEMIA
     Dates: start: 20100823
  5. VITAMIN D [Concomitant]
     Indication: VITAMIN D DEFICIENCY
     Dates: start: 20110106
  6. CALCIUM CARBONATE [Concomitant]
     Indication: SUPPLEMENTATION THERAPY
     Dates: start: 19910101
  7. IBUPROFEN (ADVIL) [Concomitant]
     Indication: RHEUMATOID ARTHRITIS
     Dates: start: 20090601
  8. PREDNISONE TAB [Concomitant]
     Indication: RHEUMATOID ARTHRITIS
     Route: 048
     Dates: start: 20080401
  9. IBUPROFEN [Concomitant]

REACTIONS (3)
  - EPISTAXIS [None]
  - BLOOD PRESSURE INCREASED [None]
  - PROCEDURAL PAIN [None]
